FAERS Safety Report 6347661-8 (Version None)
Quarter: 2009Q3

REPORT INFORMATION
  Report Type: 
  Country: None (occurrence: None)
  Receive Date: 20090910
  Receipt Date: 20090902
  Transmission Date: 20100115
  Serious: Yes (Hospitalization, Other)
  Sender: FDA-Public Use
  Company Number: US-MERCK-0702USA00122

PATIENT
  Age: 37 Year
  Sex: Female
  Weight: 70 kg

DRUGS (7)
  1. FOSAMAX [Suspect]
     Indication: OSTEOPOROSIS
     Route: 048
     Dates: start: 19950101, end: 20060701
  2. FOSAMAX [Suspect]
     Route: 048
     Dates: start: 20020131, end: 20050101
  3. FOSAMAX [Suspect]
     Route: 048
     Dates: start: 19980101, end: 20030101
  4. FOSAMAX [Suspect]
     Indication: OSTEOPENIA
     Route: 048
     Dates: start: 19950101, end: 20060701
  5. FOSAMAX [Suspect]
     Route: 048
     Dates: start: 20020131, end: 20050101
  6. FOSAMAX [Suspect]
     Route: 048
     Dates: start: 19980101, end: 20030101
  7. ESTROGENS (UNSPECIFIED) [Concomitant]
     Route: 065
     Dates: start: 19930101, end: 19970101

REACTIONS (39)
  - ABDOMINAL DISCOMFORT [None]
  - ABDOMINAL PAIN [None]
  - ADVERSE DRUG REACTION [None]
  - ARTHRALGIA [None]
  - ASTHENIA [None]
  - BACK PAIN [None]
  - CONJUNCTIVITIS [None]
  - DIABETES MELLITUS [None]
  - DIABETIC NEUROPATHY [None]
  - DIARRHOEA [None]
  - DIZZINESS [None]
  - DRUG INTOLERANCE [None]
  - DYSPEPSIA [None]
  - FISTULA [None]
  - FLATULENCE [None]
  - FOREIGN BODY TRAUMA [None]
  - GASTROOESOPHAGEAL REFLUX DISEASE [None]
  - HYPERGLYCAEMIA [None]
  - IMPAIRED HEALING [None]
  - INFLUENZA [None]
  - INSOMNIA [None]
  - LACTOSE INTOLERANCE [None]
  - MOUTH ULCERATION [None]
  - MYALGIA [None]
  - NAUSEA [None]
  - OESOPHAGITIS [None]
  - ORAL FUNGAL INFECTION [None]
  - OSTEOMALACIA [None]
  - OSTEONECROSIS [None]
  - RIB FRACTURE [None]
  - SINUS POLYP [None]
  - SINUSITIS [None]
  - THROAT IRRITATION [None]
  - THROAT TIGHTNESS [None]
  - TOOTH FRACTURE [None]
  - TYPE 2 DIABETES MELLITUS [None]
  - UMBILICAL HERNIA REPAIR [None]
  - VOMITING [None]
  - WEIGHT DECREASED [None]
